FAERS Safety Report 6763595-9 (Version None)
Quarter: 2010Q2

REPORT INFORMATION
  Report Type: 
  Country: None (occurrence: None)
  Receive Date: 20100610
  Receipt Date: 20100603
  Transmission Date: 20101027
  Serious: Yes (Other)
  Sender: FDA-Public Use
  Company Number: US-ELI_LILLY_AND_COMPANY-US201006001585

PATIENT
  Sex: Male

DRUGS (6)
  1. HUMULIN N [Suspect]
     Indication: TYPE 2 DIABETES MELLITUS
     Dosage: 50 U, EACH MORNING
  2. HUMULIN N [Suspect]
     Dosage: 42 U, EACH EVENING
  3. HUMULIN R [Suspect]
     Indication: TYPE 2 DIABETES MELLITUS
     Dosage: 15 U, EACH MORNING
  4. HUMULIN R [Suspect]
     Dosage: 10 U, EACH EVENING
  5. HUMULIN N [Suspect]
     Dosage: 50 U, EACH MORNING
  6. HUMULIN N [Suspect]
     Dosage: 42 U, EACH EVENING

REACTIONS (4)
  - BLINDNESS UNILATERAL [None]
  - BLOOD GLUCOSE INCREASED [None]
  - GANGRENE [None]
  - LIMB INJURY [None]
